FAERS Safety Report 9041111 (Version 1)
Quarter: 2013Q1

REPORT INFORMATION
  Report Type: Spontaneous
  Country: US (occurrence: None)
  Receive Date: 20130114
  Receipt Date: 20130114
  Transmission Date: 20140127
  Serious: Yes (Other)
  Sender: FDA-Public Use
  Company Number: 001447489A

PATIENT
  Age: 48 Year
  Sex: Female

DRUGS (5)
  1. SHEER COVER LATTE MINERAL FOUNDATION [Suspect]
     Dosage: DERMAL
     Dates: start: 20120605
  2. SHEER COVER BUFF MINERAL FOUNDATION SPF 15 [Suspect]
     Dosage: DERMAL
     Dates: start: 20120605
  3. WEN HAIR PRODUCTS [Concomitant]
  4. INSULIN [Concomitant]
  5. MULTIVITAMIN [Concomitant]

REACTIONS (5)
  - Anaphylactic reaction [None]
  - Pruritus [None]
  - Rash [None]
  - Rash [None]
  - Dyspnoea [None]
